FAERS Safety Report 9120647 (Version 1)
Quarter: 2013Q1

REPORT INFORMATION
  Report Type: Spontaneous
  Country: DK (occurrence: DK)
  Receive Date: 20130226
  Receipt Date: 20130226
  Transmission Date: 20140127
  Serious: Yes (Other)
  Sender: FDA-Public Use
  Company Number: DK-BAXTER-2013BAX007017

PATIENT
  Sex: Female
  Weight: 80 kg

DRUGS (15)
  1. SENDOXAN [Suspect]
     Indication: BREAST CANCER
     Route: 042
     Dates: start: 20111011, end: 201201
  2. NAVELBINE [Suspect]
     Indication: BREAST CANCER
     Route: 048
     Dates: start: 201211, end: 201301
  3. TRASTUZUMAB [Suspect]
     Indication: BREAST CANCER
     Route: 042
     Dates: start: 20111213, end: 201207
  4. TRASTUZUMAB [Suspect]
     Route: 042
     Dates: start: 201211, end: 201301
  5. XELODA [Suspect]
     Indication: BREAST CANCER
     Dosage: 1-14 DAY
     Route: 048
     Dates: start: 201207, end: 201209
  6. DOCETAXEL [Suspect]
     Indication: BREAST CANCER
     Route: 042
     Dates: start: 2012, end: 201207
  7. LAPATINIB [Suspect]
     Indication: BREAST CANCER
     Route: 048
     Dates: start: 201207, end: 201209
  8. MITOMYCIN [Suspect]
     Indication: PRODUCT USED FOR UNKNOWN INDICATION
     Route: 065
     Dates: start: 201210, end: 201211
  9. GEMCITABINE [Suspect]
     Indication: PRODUCT USED FOR UNKNOWN INDICATION
     Route: 065
     Dates: start: 201210, end: 201211
  10. CISPLATIN [Suspect]
     Indication: PRODUCT USED FOR UNKNOWN INDICATION
     Route: 065
     Dates: start: 201211, end: 201301
  11. EPIRUBICIN [Suspect]
     Indication: BREAST CANCER
     Route: 042
     Dates: start: 20111011, end: 201201
  12. AMLODIPIN [Concomitant]
     Indication: HYPERTENSION
     Route: 048
  13. LISINOPRIL [Concomitant]
     Indication: HYPERTENSION
     Dosage: 10/2.5 MG
     Route: 048
  14. EPIRUBICIN HYDROCHLORIDE [Concomitant]
     Indication: PRODUCT USED FOR UNKNOWN INDICATION
     Route: 065
  15. CYCLOPHOSPHAMIDE FOR INJECTION, USP [Concomitant]
     Indication: PRODUCT USED FOR UNKNOWN INDICATION
     Route: 065

REACTIONS (1)
  - Disease progression [Not Recovered/Not Resolved]
